FAERS Safety Report 8224155-6 (Version None)
Quarter: 2012Q1

REPORT INFORMATION
  Report Type: 
  Country: None (occurrence: None)
  Receive Date: 20120321
  Receipt Date: 20120313
  Transmission Date: 20120608
  Serious: Yes (Hospitalization)
  Sender: FDA-Public Use
  Company Number: US-BAYER-2012-025710

PATIENT
  Age: 27 Year
  Sex: Female

DRUGS (9)
  1. SKULLCAP [Concomitant]
  2. ATIVAN [Concomitant]
  3. OXYCODONE HCL [Concomitant]
  4. DROSPIRENONE AND ETHINYL ESTRADIOL [Suspect]
  5. YASMIN [Suspect]
  6. VALERIAN ROOT [Concomitant]
  7. PERCOCET [Concomitant]
     Indication: PAIN
     Dosage: UNK
     Dates: start: 20090531
  8. KAVA-KAVA RHIZOMA [Concomitant]
  9. PHENERGAN [Concomitant]
     Indication: NAUSEA
     Dosage: 12.5 MG, UNK
     Route: 054
     Dates: start: 20090531

REACTIONS (1)
  - PULMONARY EMBOLISM [None]
